FAERS Safety Report 6555477-2 (Version None)
Quarter: 2010Q1

REPORT INFORMATION
  Report Type: 
  Country: None (occurrence: None)
  Receive Date: 20100128
  Receipt Date: 20100125
  Transmission Date: 20100710
  Serious: Yes (Life-Threatening)
  Sender: FDA-Public Use
  Company Number: FR-ASTRAZENECA-2010SE03277

PATIENT
  Age: 16170 Day
  Sex: Male

DRUGS (2)
  1. DIPRIVAN [Suspect]
     Route: 042
     Dates: start: 20091015, end: 20091015
  2. RAPIFEN [Suspect]
     Route: 042
     Dates: start: 20091015, end: 20091015

REACTIONS (3)
  - CIRCULATORY COLLAPSE [None]
  - GENERALISED ERYTHEMA [None]
  - HYPERCAPNIA [None]
